FAERS Safety Report 6212024-2 (Version None)
Quarter: 2009Q2

REPORT INFORMATION
  Report Type: 
  Country: None (occurrence: None)
  Receive Date: 20090529
  Receipt Date: 20090513
  Transmission Date: 20091009
  Serious: Yes (Hospitalization)
  Sender: FDA-Public Use
  Company Number: JPI-P-007121

PATIENT
  Age: 49 Year
  Sex: Male

DRUGS (3)
  1. XYREM [Suspect]
     Indication: APNOEA
     Dosage: 4.5 GM (2.25 GM,2 IN 1 D),ORAL
     Route: 048
     Dates: start: 20090101
  2. XYREM [Suspect]
     Indication: APNOEA
     Dosage: 4.5 GM (2.25 GM,2 IN 1 D),ORAL
     Route: 048
     Dates: start: 20090414
  3. MODAFINIL [Suspect]
     Indication: DRUG USE FOR UNKNOWN INDICATION

REACTIONS (4)
  - DELUSION OF GRANDEUR [None]
  - INTENTIONAL DRUG MISUSE [None]
  - MANIA [None]
  - PSYCHOTIC DISORDER [None]
